FAERS Safety Report 9766020 (Version 2)
Quarter: 2014Q1

REPORT INFORMATION
  Report Type: Spontaneous
  Country: US (occurrence: US)
  Receive Date: 20131217
  Receipt Date: 20140313
  Transmission Date: 20141002
  Serious: No
  Sender: FDA-Public Use
  Company Number: US-BIOGENIDEC-2013BI116830

PATIENT
  Age: 49 Year
  Sex: Female

DRUGS (7)
  1. TECFIDERA [Suspect]
     Indication: MULTIPLE SCLEROSIS
     Route: 048
     Dates: start: 20130719
  2. ALBUTEROL SULFATE [Concomitant]
  3. PREDNISONE [Concomitant]
  4. GABAPENTIN [Concomitant]
  5. ADVAIR HFA [Concomitant]
  6. KLONOPIN [Concomitant]
  7. SINGULAIR [Concomitant]

REACTIONS (2)
  - Pain in extremity [Unknown]
  - Arthralgia [Unknown]
